FAERS Safety Report 5680215-5 (Version None)
Quarter: 2008Q1

REPORT INFORMATION
  Report Type: 
  Country: None (occurrence: None)
  Receive Date: 20080326
  Receipt Date: 20080320
  Transmission Date: 20080703
  Serious: Yes (Other)
  Sender: FDA-Public Use
  Company Number: PHEH2008US02990

PATIENT
  Sex: Male

DRUGS (2)
  1. TEKTURNA [Suspect]
     Dosage: UNK, UNK
  2. K-DUR [Suspect]
     Dosage: UNK, UNK

REACTIONS (1)
  - HYPOKALAEMIA [None]
